FAERS Safety Report 6438611-4 (Version None)
Quarter: 2009Q4

REPORT INFORMATION
  Report Type: 
  Country: None (occurrence: None)
  Receive Date: 20091110
  Receipt Date: 20091026
  Transmission Date: 20100525
  Serious: Yes (Hospitalization)
  Sender: FDA-Public Use
  Company Number: 2009AC000321

PATIENT
  Age: 45 Year
  Sex: Female

DRUGS (5)
  1. DIGOXIN [Suspect]
     Indication: ATRIAL FIBRILLATION
     Dosage: 0.125 MG; QD; PO
     Route: 048
     Dates: start: 19960501
  2. VERAPAMIL [Concomitant]
  3. PLAVIX [Concomitant]
  4. ASPIRIN [Concomitant]
  5. ASPIRIN [Concomitant]

REACTIONS (15)
  - ARTHRALGIA [None]
  - ATRIAL FIBRILLATION [None]
  - BLOOD PRESSURE DECREASED [None]
  - DIZZINESS [None]
  - ECONOMIC PROBLEM [None]
  - EXOSTOSIS [None]
  - HEADACHE [None]
  - INFLUENZA [None]
  - JOINT SWELLING [None]
  - MULTIPLE INJURIES [None]
  - PALPITATIONS [None]
  - SINUS BRADYCARDIA [None]
  - SURGERY [None]
  - TREATMENT NONCOMPLIANCE [None]
  - UPPER RESPIRATORY TRACT INFECTION [None]
